FAERS Safety Report 20654827 (Version 1)
Quarter: 2022Q1

REPORT INFORMATION
  Report Type: Spontaneous
  Country: US (occurrence: None)
  Receive Date: 20220330
  Receipt Date: 20220330
  Transmission Date: 20220423
  Serious: Yes (Disabling)
  Sender: FDA-Public Use
  Company Number: None

PATIENT
  Age: 67 Year
  Sex: Female
  Weight: 54 kg

DRUGS (7)
  1. PROLIA [Suspect]
     Active Substance: DENOSUMAB
     Indication: Osteoporosis
     Dosage: OTHER QUANTITY : 1 INJECTION(S);?OTHER FREQUENCY : EVERY 180 DAYS;?
     Route: 058
  2. Levothyroxin 50 MCG [Concomitant]
  3. MINERALS\VITAMINS [Concomitant]
     Active Substance: MINERALS\VITAMINS
  4. 1200 calcium plus D3 [Concomitant]
  5. 400 magnesium [Concomitant]
  6. 400 B12 [Concomitant]
  7. PROLIA [Suspect]
     Active Substance: DENOSUMAB
     Indication: Osteoporosis
     Dosage: OTHER QUANTITY : 1 INJECTION(S);?OTHER FREQUENCY : EVERY 180 DAYS;?
     Route: 058

REACTIONS (3)
  - Tooth disorder [None]
  - Dental implantation [None]
  - Bone loss [None]

NARRATIVE: CASE EVENT DATE: 20220304
